FAERS Safety Report 18357190 (Version 1)
Quarter: 2020Q4

REPORT INFORMATION
  Report Type: Spontaneous
  Country: HU (occurrence: HU)
  Receive Date: 20201007
  Receipt Date: 20201007
  Transmission Date: 20210114
  Serious: Yes (Life-Threatening, Other)
  Sender: FDA-Public Use
  Company Number: HU-JNJFOC-20200943248

PATIENT
  Age: 12 Year
  Sex: Male

DRUGS (20)
  1. PHENYTOIN. [Suspect]
     Active Substance: PHENYTOIN
     Indication: HYPERKINESIA
  2. CLONAZEPAM. [Suspect]
     Active Substance: CLONAZEPAM
     Indication: SEIZURE
  3. HALOPERIDOL. [Suspect]
     Active Substance: HALOPERIDOL
     Indication: EMOTIONAL DISORDER
     Route: 065
  4. DIAZEPAM. [Suspect]
     Active Substance: DIAZEPAM
     Indication: HYPERKINESIA
  5. CLONAZEPAM. [Suspect]
     Active Substance: CLONAZEPAM
     Indication: HYPERTONIA
  6. HALOPERIDOL. [Suspect]
     Active Substance: HALOPERIDOL
     Indication: AGITATION
     Route: 048
  7. DIAZEPAM. [Suspect]
     Active Substance: DIAZEPAM
     Indication: LOSS OF CONSCIOUSNESS
     Route: 065
  8. CLONAZEPAM. [Suspect]
     Active Substance: CLONAZEPAM
     Indication: CONFUSIONAL STATE
     Route: 065
  9. HALOPERIDOL. [Suspect]
     Active Substance: HALOPERIDOL
     Indication: MENTAL DISORDER
     Route: 042
  10. DIAZEPAM. [Suspect]
     Active Substance: DIAZEPAM
     Indication: CONFUSIONAL STATE
  11. DIAZEPAM. [Suspect]
     Active Substance: DIAZEPAM
     Indication: SEIZURE
  12. PHENYTOIN. [Suspect]
     Active Substance: PHENYTOIN
     Indication: SEIZURE
     Route: 065
  13. CARBAMAZEPIN [Concomitant]
     Active Substance: CARBAMAZEPINE
     Indication: EMOTIONAL DISORDER
     Route: 065
  14. DIAZEPAM. [Suspect]
     Active Substance: DIAZEPAM
     Indication: HYPERTONIA
  15. PHENYTOIN. [Suspect]
     Active Substance: PHENYTOIN
     Indication: HYPERTONIA
  16. PHENYTOIN. [Suspect]
     Active Substance: PHENYTOIN
     Indication: LOSS OF CONSCIOUSNESS
  17. PHENYTOIN. [Suspect]
     Active Substance: PHENYTOIN
     Indication: CONFUSIONAL STATE
  18. CLONAZEPAM. [Suspect]
     Active Substance: CLONAZEPAM
     Indication: LOSS OF CONSCIOUSNESS
  19. CLONAZEPAM. [Suspect]
     Active Substance: CLONAZEPAM
     Indication: HYPERKINESIA
  20. CARBAMAZEPIN [Concomitant]
     Active Substance: CARBAMAZEPINE
     Indication: AGITATION
     Route: 048

REACTIONS (3)
  - Neuroleptic malignant syndrome [Recovered/Resolved]
  - Medication error [Recovered/Resolved]
  - Seizure [Unknown]
